FAERS Safety Report 4353798-5 (Version None)
Quarter: 2004Q2

REPORT INFORMATION
  Report Type: 
  Country: None (occurrence: None)
  Receive Date: 20040429
  Receipt Date: 20030425
  Transmission Date: 20050107
  Serious: Yes (Other)
  Sender: FDA-Public Use
  Company Number: 1672244A

PATIENT
  Age: 1 Year
  Sex: Male
  Weight: 9.0719 kg

DRUGS (1)
  1. IMODIUM A-D [Suspect]
     Indication: DIARRHOEA
     Dosage: 0.25 MG, QD, PO
     Route: 048

REACTIONS (2)
  - CONDITION AGGRAVATED [None]
  - DIARRHOEA [None]
